FAERS Safety Report 4409978-3 (Version None)
Quarter: 2004Q3

REPORT INFORMATION
  Report Type: 
  Country: None (occurrence: None)
  Receive Date: 20040726
  Receipt Date: 20040714
  Transmission Date: 20050211
  Serious: Yes (Hospitalization, Other)
  Sender: FDA-Public Use
  Company Number: 2003173919JP

PATIENT
  Age: 9 Year
  Sex: Male

DRUGS (5)
  1. GENOTROPIN [Suspect]
     Indication: HYPOPITUITARISM
     Dosage: SEE IMAGE
     Route: 058
     Dates: start: 20021011, end: 20021108
  2. GENOTROPIN [Suspect]
     Indication: HYPOPITUITARISM
     Dosage: SEE IMAGE
     Route: 058
     Dates: start: 20021109, end: 20030613
  3. GENOTROPIN [Suspect]
     Indication: HYPOPITUITARISM
     Dosage: SEE IMAGE
     Route: 058
     Dates: start: 20030614, end: 20030820
  4. LEVOTHYROXINE SODIUM [Concomitant]
  5. FERRIC PYROPHOSPHATE [Concomitant]

REACTIONS (7)
  - CALCINOSIS [None]
  - CONVULSION [None]
  - DEPRESSED LEVEL OF CONSCIOUSNESS [None]
  - ENTERITIS [None]
  - INAPPROPRIATE ANTIDIURETIC HORMONE SECRETION [None]
  - PINEALOMA [None]
  - WEIGHT INCREASED [None]
